FAERS Safety Report 12836243 (Version 1)
Quarter: 2016Q4

REPORT INFORMATION
  Report Type: Spontaneous
  Country: US (occurrence: US)
  Receive Date: 20161010
  Receipt Date: 20161010
  Transmission Date: 20170207
  Serious: No
  Sender: FDA-Public Use
  Company Number: None

PATIENT
  Age: 44 Year
  Sex: Male

DRUGS (1)
  1. DAKLINZA [Suspect]
     Active Substance: DACLATASVIR
     Indication: CHRONIC HEPATITIS C
     Dosage: 1 QD
     Route: 048
     Dates: start: 20160825

REACTIONS (2)
  - Nasopharyngitis [None]
  - Fatigue [None]

NARRATIVE: CASE EVENT DATE: 20161010
